APPROVED DRUG PRODUCT: OXYCONTIN
Active Ingredient: OXYCODONE HYDROCHLORIDE
Strength: 80MG
Dosage Form/Route: TABLET, EXTENDED RELEASE;ORAL
Application: N022272 | Product #007
Applicant: PURDUE PHARMA LP
Approved: Apr 5, 2010 | RLD: Yes | RS: No | Type: RX

PATENTS:
Patent 8808741 | Expires: Aug 24, 2027
Patent 9492391 | Expires: Aug 24, 2027
Patent 9492393 | Expires: Aug 24, 2027
Patent 11304909 | Expires: Aug 24, 2027
Patent 9770416 | Expires: Aug 24, 2027
Patent 12246094 | Expires: Aug 24, 2027
Patent 9492392 | Expires: Aug 24, 2027
Patent 8894988 | Expires: Aug 24, 2027
Patent 12280152 | Expires: Aug 24, 2027
Patent 9775808 | Expires: Aug 24, 2027
Patent 9492389 | Expires: Aug 24, 2027
Patent 11304908 | Expires: Aug 24, 2027
Patent 11964056 | Expires: Aug 24, 2027
Patent 9763933 | Expires: Aug 24, 2027